FAERS Safety Report 10068157 (Version 1)
Quarter: 2014Q2

REPORT INFORMATION
  Report Type: Spontaneous
  Country: US (occurrence: US)
  Receive Date: 20140409
  Receipt Date: 20140409
  Transmission Date: 20141212
  Serious: No
  Sender: FDA-Public Use
  Company Number: US-PFIZER INC-2014096992

PATIENT
  Age: 64 Year
  Sex: Female
  Weight: 83.9 kg

DRUGS (3)
  1. SUTENT [Suspect]
     Indication: CARCINOID TUMOUR
     Dosage: 37.5 MG, CYCLIC
     Dates: start: 201305
  2. CALCIUM [Concomitant]
     Indication: NEOPLASM MALIGNANT
     Dosage: UNK
  3. SIMVASTATIN [Concomitant]
     Dosage: UNK

REACTIONS (3)
  - Disease progression [Unknown]
  - Carcinoid tumour [Unknown]
  - Off label use [Unknown]
